FAERS Safety Report 18739537 (Version 1)
Quarter: 2021Q1

REPORT INFORMATION
  Report Type: Spontaneous
  Country: US (occurrence: US)
  Receive Date: 20210113
  Receipt Date: 20210113
  Transmission Date: 20210419
  Serious: No
  Sender: FDA-Public Use
  Company Number: None

PATIENT
  Sex: Male

DRUGS (1)
  1. ICATIBANT ACETATE SYR (3?PAK) 30MG/3ML TEVA PHARMACEUTICALS USA [Suspect]
     Active Substance: ICATIBANT ACETATE
     Indication: HEREDITARY ANGIOEDEMA
     Dosage: ?          OTHER FREQUENCY:AS NEEDED;?
     Route: 058
     Dates: start: 202011

REACTIONS (1)
  - Hereditary angioedema [None]
